FAERS Safety Report 15851188 (Version 2)
Quarter: 2019Q3

REPORT INFORMATION
  Report Type: Spontaneous
  Country: IN (occurrence: IN)
  Receive Date: 20190122
  Receipt Date: 20190716
  Transmission Date: 20191004
  Serious: Yes (Life-Threatening, Hospitalization, Other)
  Sender: FDA-Public Use
  Company Number: IN-SUN PHARMACEUTICAL INDUSTRIES LTD-2019R1-196442

PATIENT
  Age: 60 Year
  Sex: Male

DRUGS (2)
  1. CARBIDOPA AND LEVODOPA [Suspect]
     Active Substance: CARBIDOPA\LEVODOPA
     Indication: PARKINSON^S DISEASE
     Dosage: UNK UNK, TID
     Route: 065
  2. BROMOCRIPTINE [Concomitant]
     Active Substance: BROMOCRIPTINE
     Indication: PARKINSON^S DISEASE
     Dosage: 2.5 MILLIGRAM, TID
     Route: 065

REACTIONS (3)
  - Product dose omission [Unknown]
  - Therapy cessation [Unknown]
  - Parkinsonism hyperpyrexia syndrome [Recovered/Resolved]
